FAERS Safety Report 8572739 (Version 2)
Quarter: 2012Q4

REPORT INFORMATION
  Report Type: 
  Country: US (occurrence: US)
  Receive Date: 20120522
  Receipt Date: 20121015
  Transmission Date: 20130627
  Serious: Yes (Hospitalization, Other)
  Sender: FDA-Public Use
  Company Number: US-PFIZER INC-2012120911

PATIENT
  Age: 66 Year
  Sex: Female
  Weight: 78 kg

DRUGS (7)
  1. SUTENT [Suspect]
     Indication: RENAL CANCER
     Dosage: 50 mg, 1x/day (daily)
     Dates: start: 201202, end: 2012
  2. SUTENT [Suspect]
     Dosage: 37.5 mg, 1x/day (daily)
     Dates: start: 201204
  3. SUTENT [Suspect]
     Dosage: 25 mg, UNK
  4. CLONIDINE [Suspect]
     Indication: HYPERTENSION
     Dosage: 10 mg, 3x/day
     Dates: end: 201204
  5. TAMOXIFEN [Concomitant]
     Indication: BLOOD CHOLESTEROL ABNORMAL
     Dosage: 10 mg, 1x/day (daily)
     Dates: end: 201205
  6. TAMOXIFEN [Concomitant]
     Dosage: 20 mg, 1x/day (daily)
     Dates: start: 20120516
  7. VENLAFAXINE [Concomitant]
     Dosage: 75 mg, 1x/day in the afternoon

REACTIONS (3)
  - Hypertension [Recovered/Resolved]
  - Hypertension [Unknown]
  - Migraine [Recovered/Resolved]
